APPROVED DRUG PRODUCT: QUETIAPINE FUMARATE
Active Ingredient: QUETIAPINE FUMARATE
Strength: EQ 50MG BASE
Dosage Form/Route: TABLET;ORAL
Application: A204316 | Product #002 | TE Code: AB
Applicant: HETERO LABS LTD UNIT V
Approved: Jun 16, 2022 | RLD: No | RS: No | Type: RX